FAERS Safety Report 12970059 (Version 4)
Quarter: 2017Q1

REPORT INFORMATION
  Report Type: Spontaneous
  Country: US (occurrence: US)
  Receive Date: 20161123
  Receipt Date: 20170117
  Transmission Date: 20170428
  Serious: Yes (Hospitalization)
  Sender: FDA-Public Use
  Company Number: US-ACTELION-A-US2016-145807

PATIENT
  Age: 14 Year
  Sex: Female

DRUGS (23)
  1. ADCIRCA [Concomitant]
     Active Substance: TADALAFIL
     Dosage: 40 MG, QD
  2. CETIRIZINE [Concomitant]
     Active Substance: CETIRIZINE HYDROCHLORIDE
     Dosage: UNK, PRN, QPM
  3. FERROUS SULFATE. [Concomitant]
     Active Substance: FERROUS SULFATE
     Dosage: 325 MG, QD
  4. XOPENEX [Concomitant]
     Active Substance: LEVALBUTEROL HYDROCHLORIDE
     Dosage: UNK, PRN
  5. CARAFATE [Concomitant]
     Active Substance: SUCRALFATE
     Dosage: 1 G, TID
  6. AMLODIPINE [Concomitant]
     Active Substance: AMLODIPINE BESYLATE
     Dosage: 5 MG, BID
  7. CELEBREX [Concomitant]
     Active Substance: CELECOXIB
     Dosage: 100 MG, BID PRN
  8. FLONASE [Concomitant]
     Active Substance: FLUTICASONE PROPIONATE
     Dosage: 1 SPRAY EACH NOSTRIL, QD
     Route: 045
  9. IMURAN [Concomitant]
     Active Substance: AZATHIOPRINE
     Dosage: 150 MG, QD
  10. ERYPED [Concomitant]
     Active Substance: ERYTHROMYCIN ETHYLSUCCINATE
     Dosage: 6.25 ML, TID
  11. NEURONTIN [Concomitant]
     Active Substance: GABAPENTIN
     Dosage: 300 MG, BID
  12. MAGNESIUM OXIDE. [Concomitant]
     Active Substance: MAGNESIUM OXIDE
     Dosage: 400 MG, UNK
  13. UPTRAVI [Suspect]
     Active Substance: SELEXIPAG
     Indication: PULMONARY HYPERTENSION
     Dosage: 200 MCG, BID
     Route: 048
     Dates: start: 20161107
  14. OPSUMIT [Suspect]
     Active Substance: MACITENTAN
     Indication: PULMONARY HYPERTENSION
     Dosage: 10 MG, QD
     Route: 048
     Dates: start: 20151228
  15. ZYRTEC [Concomitant]
     Active Substance: CETIRIZINE HYDROCHLORIDE
     Dosage: 10 MG, QD
  16. FLUTICASONE. [Concomitant]
     Active Substance: FLUTICASONE
     Dosage: 2 PUFF, BID
  17. PLAQUENIL [Concomitant]
     Active Substance: HYDROXYCHLOROQUINE SULFATE
     Dosage: 400 MG, QD
  18. UPTRAVI [Suspect]
     Active Substance: SELEXIPAG
     Dosage: UNK, QD
     Route: 048
  19. FAMOTIDINE. [Concomitant]
     Active Substance: FAMOTIDINE
     Dosage: 40 MG, QD
  20. FEXOFENADINE [Concomitant]
     Active Substance: FEXOFENADINE\FEXOFENADINE HYDROCHLORIDE
     Dosage: 180 MG, QD
  21. INSULIN [Concomitant]
     Active Substance: INSULIN NOS
  22. DEPO-PROVERA [Concomitant]
     Active Substance: MEDROXYPROGESTERONE ACETATE
  23. ZOFRAN [Concomitant]
     Active Substance: ONDANSETRON HYDROCHLORIDE
     Dosage: UNK, PRN

REACTIONS (10)
  - Oropharyngeal pain [Unknown]
  - Pulmonary mass [Unknown]
  - Rhinorrhoea [Unknown]
  - Unevaluable event [Unknown]
  - Cough [Unknown]
  - Headache [Recovering/Resolving]
  - Abdominal pain [Recovering/Resolving]
  - Haemoptysis [Recovered/Resolved]
  - Diarrhoea [Unknown]
  - Nausea [Unknown]

NARRATIVE: CASE EVENT DATE: 20161116
